FAERS Safety Report 4429213-X (Version None)
Quarter: 2004Q3

REPORT INFORMATION
  Report Type: 
  Country: None (occurrence: None)
  Receive Date: 20040819
  Receipt Date: 20040806
  Transmission Date: 20050211
  Serious: Yes (Hospitalization)
  Sender: FDA-Public Use
  Company Number: 200412544JP

PATIENT
  Age: 66 Year
  Sex: Female
  Weight: 56 kg

DRUGS (8)
  1. ARAVA [Suspect]
     Indication: PROPHYLAXIS
     Route: 048
     Dates: start: 20031004, end: 20031208
  2. ARAVA [Suspect]
     Indication: RHEUMATOID ARTHRITIS
     Route: 048
     Dates: start: 20031004, end: 20031208
  3. MEDROL [Suspect]
     Indication: RHEUMATOID ARTHRITIS
     Route: 048
  4. LOXONIN [Concomitant]
     Indication: RHEUMATOID ARTHRITIS
     Route: 048
  5. SELBEX [Concomitant]
     Indication: GASTRITIS
     Route: 048
  6. GASTER [Concomitant]
     Route: 048
  7. MEDROL [Concomitant]
     Route: 048
  8. LAC B [Concomitant]
     Route: 048

REACTIONS (4)
  - ALOPECIA [None]
  - DIARRHOEA [None]
  - HYPOGLYCAEMIA [None]
  - PYREXIA [None]
